FAERS Safety Report 8315349-X (Version None)
Quarter: 2012Q2

REPORT INFORMATION
  Report Type: 
  Country: None (occurrence: None)
  Receive Date: 20120426
  Receipt Date: 20110705
  Transmission Date: 20120825
  Serious: Yes (Other)
  Sender: FDA-Public Use
  Company Number: SK-UCBSA-8039760

PATIENT
  Age: 51 Year
  Sex: Female
  Weight: 80 kg

DRUGS (7)
  1. CERTOLIZUMAB PEGOL [Suspect]
     Route: 058
     Dates: start: 20060329
  2. CERTOLIZUMAB PEGOL [Suspect]
     Route: 058
     Dates: end: 20081216
  3. BENZALKONIUM CHLORIDE [Concomitant]
     Indication: CONTRACEPTION
     Route: 067
     Dates: start: 20010101
  4. FOLIC ACID [Concomitant]
     Indication: RHEUMATOID ARTHRITIS
     Route: 048
     Dates: start: 20020319
  5. DICLOFENAC NATRICUM [Concomitant]
     Indication: RHEUMATOID ARTHRITIS
     Route: 048
     Dates: start: 20040428
  6. CERTOLIZUMAB PEGOL [Suspect]
     Indication: RHEUMATOID ARTHRITIS
     Route: 058
     Dates: start: 20051108, end: 20060221
  7. METHOTREXATE [Concomitant]
     Indication: RHEUMATOID ARTHRITIS
     Route: 048
     Dates: start: 20040428

REACTIONS (1)
  - MALIGNANT MELANOMA [None]
